FAERS Safety Report 9915625 (Version 1)
Quarter: 2014Q1

REPORT INFORMATION
  Report Type: Spontaneous
  Country: US (occurrence: None)
  Receive Date: 20140219
  Receipt Date: 20140219
  Transmission Date: 20141002
  Serious: Yes (Hospitalization)
  Sender: FDA-Public Use
  Company Number: None

PATIENT
  Age: 62 Year
  Sex: Female

DRUGS (1)
  1. OCTREOTIDE [Suspect]
     Indication: SHORT-BOWEL SYNDROME
     Dates: start: 20110302

REACTIONS (3)
  - Dehydration [None]
  - Palpitations [None]
  - Heart rate irregular [None]
